FAERS Safety Report 10704724 (Version 1)
Quarter: 2015Q1

REPORT INFORMATION
  Report Type: Spontaneous
  Country: US (occurrence: None)
  Receive Date: 20150109
  Receipt Date: 20150109
  Transmission Date: 20150721
  Serious: No
  Sender: FDA-Public Use
  Company Number: None

PATIENT
  Age: 48 Year
  Sex: Male
  Weight: 102.3 kg

DRUGS (2)
  1. CIPROFLOXACIN. [Suspect]
     Active Substance: CIPROFLOXACIN
     Indication: ENDOSCOPY
     Route: 048
     Dates: start: 20140910, end: 20140912
  2. CIPROFLOXACIN. [Suspect]
     Active Substance: CIPROFLOXACIN
     Indication: ANAESTHETIC PREMEDICATION
     Route: 048
     Dates: start: 20140910, end: 20140912

REACTIONS (1)
  - Jaundice [None]

NARRATIVE: CASE EVENT DATE: 20140924
